FAERS Safety Report 23222740 (Version 1)
Quarter: 2023Q4

REPORT INFORMATION
  Report Type: Spontaneous
  Country: NL (occurrence: NL)
  Receive Date: 20231123
  Receipt Date: 20231123
  Transmission Date: 20240109
  Serious: Yes (Other)
  Sender: FDA-Public Use
  Company Number: NL-LRB-00923453

PATIENT
  Age: 56 Year
  Sex: Female
  Weight: 75 kg

DRUGS (3)
  1. PREDNISOLONE [Suspect]
     Active Substance: PREDNISOLONE
     Indication: Inflammation
     Dosage: 1 DOSAGE FORM, DAILY
     Route: 065
     Dates: start: 20231026
  2. AZITHROMYCIN [Suspect]
     Active Substance: AZITHROMYCIN
     Indication: Pneumonia
     Dosage: 1 DOSAGE FORM, DAILY
     Route: 065
     Dates: start: 20231028, end: 20231031
  3. LEVOCETIRIZINE [Suspect]
     Active Substance: LEVOCETIRIZINE
     Indication: Hypersensitivity
     Dosage: 1 DOSAGE FORM, DAILY
     Route: 065
     Dates: start: 20231028

REACTIONS (5)
  - Neuropathy peripheral [Recovering/Resolving]
  - Diarrhoea [Not Recovered/Not Resolved]
  - Abdominal pain [Recovering/Resolving]
  - Hot flush [Recovering/Resolving]
  - Hypersensitivity [Recovering/Resolving]
